FAERS Safety Report 25086479 (Version 1)
Quarter: 2025Q1

REPORT INFORMATION
  Report Type: Spontaneous
  Country: JP (occurrence: JP)
  Receive Date: 20250317
  Receipt Date: 20250317
  Transmission Date: 20250409
  Serious: Yes (Other)
  Sender: TAKEDA
  Company Number: JP-TAKEDA-2025TJP002712

PATIENT
  Age: 6 Decade
  Sex: Male

DRUGS (1)
  1. FRUZAQLA [Suspect]
     Active Substance: FRUQUINTINIB
     Indication: Colon cancer

REACTIONS (2)
  - Device breakage [Recovered/Resolved]
  - Hypertension [Recovering/Resolving]

NARRATIVE: CASE EVENT DATE: 20241227
